FAERS Safety Report 5307463-8 (Version None)
Quarter: 2007Q2

REPORT INFORMATION
  Report Type: 
  Country: None (occurrence: None)
  Receive Date: 20070425
  Receipt Date: 20070413
  Transmission Date: 20071010
  Serious: Yes (Other)
  Sender: FDA-Public Use
  Company Number: JP-ROCHE-492281

PATIENT
  Age: 45 Year
  Sex: Male

DRUGS (6)
  1. TAMIFLU [Suspect]
     Route: 048
     Dates: start: 20070320, end: 20070320
  2. TAMIFLU [Suspect]
     Route: 048
     Dates: start: 20070321, end: 20070321
  3. MEDICON [Concomitant]
     Route: 048
  4. AZULENE [Concomitant]
     Route: 048
  5. TRANSAMIN [Concomitant]
     Route: 048
  6. AMBROXOL [Concomitant]
     Route: 048

REACTIONS (1)
  - MELAENA [None]
